FAERS Safety Report 14385914 (Version 1)
Quarter: 2018Q1

REPORT INFORMATION
  Report Type: Spontaneous
  Country: CO (occurrence: CO)
  Receive Date: 20180115
  Receipt Date: 20180115
  Transmission Date: 20180509
  Serious: Yes (Death)
  Sender: FDA-Public Use
  Company Number: CO-UNITED THERAPEUTICS-UNT-2018-000361

PATIENT
  Age: 54 Year
  Sex: Male

DRUGS (7)
  1. EPOPROSTENOL. [Concomitant]
     Active Substance: EPOPROSTENOL
     Indication: PULMONARY ARTERIAL HYPERTENSION
     Dosage: 0.020 ?G/KG, CONTINUING
     Route: 065
  2. SILDENAFIL. [Concomitant]
     Active Substance: SILDENAFIL
     Indication: PULMONARY ARTERIAL HYPERTENSION
     Dosage: 25 MG, Q8H
     Route: 048
     Dates: end: 20171228
  3. EPOPROSTENOL. [Concomitant]
     Active Substance: EPOPROSTENOL
     Dosage: 0.004 ?G/KG, CONTINUING
     Route: 065
     Dates: end: 20171218
  4. REMODULIN [Suspect]
     Active Substance: TREPROSTINIL
     Dosage: 0.028 ?G/KG, CONTINUING; INFUSION RATE 0.04 CC/H
     Route: 058
  5. REMODULIN [Suspect]
     Active Substance: TREPROSTINIL
     Indication: PULMONARY ARTERIAL HYPERTENSION
     Dosage: 0.004 ?G/KG, CONTINUING; INFUSION RATE 0.006 CC/H
     Route: 058
     Dates: start: 20171215, end: 20171228
  6. BOSENTAN. [Concomitant]
     Active Substance: BOSENTAN
     Indication: PULMONARY ARTERIAL HYPERTENSION
     Dosage: 50 MG, Q12H
     Route: 048
     Dates: end: 20171228
  7. OMEPRAZOLE. [Concomitant]
     Active Substance: OMEPRAZOLE
     Indication: GASTRIC ULCER
     Dosage: 20 MG, EVERY 24 HOURS
     Route: 048
     Dates: end: 20171228

REACTIONS (2)
  - Cardio-respiratory arrest [Fatal]
  - Pain [Unknown]

NARRATIVE: CASE EVENT DATE: 20171215
